FAERS Safety Report 20076878 (Version 11)
Quarter: 2022Q3

REPORT INFORMATION
  Report Type: Report from Study
  Country: GB (occurrence: GB)
  Receive Date: 20211116
  Receipt Date: 20220713
  Transmission Date: 20221027
  Serious: Yes (Life-Threatening, Other)
  Sender: FDA-Public Use
  Company Number: GB-TAKEDA-2021TUS035048

PATIENT
  Sex: Female

DRUGS (5)
  1. IXAZOMIB [Suspect]
     Active Substance: IXAZOMIB
     Indication: Plasma cell myeloma
     Dosage: 4 MILLIGRAM
     Route: 048
  2. IXAZOMIB [Suspect]
     Active Substance: IXAZOMIB
     Dosage: 3 MILLIGRAM
     Route: 048
     Dates: start: 20210528, end: 20220106
  3. IXAZOMIB [Suspect]
     Active Substance: IXAZOMIB
     Dosage: 4 MILLIGRAM
     Route: 048
  4. RAMIPRIL [Concomitant]
     Active Substance: RAMIPRIL
     Dosage: UNK
     Dates: start: 20220628
  5. ATORVASTATIN [Concomitant]
     Active Substance: ATORVASTATIN
     Dosage: UNK
     Dates: start: 20220628

REACTIONS (28)
  - Transient ischaemic attack [Unknown]
  - Gastric ulcer [Unknown]
  - Oral pain [Unknown]
  - Blood glucose abnormal [Unknown]
  - Malaise [Unknown]
  - Glossodynia [Not Recovered/Not Resolved]
  - Tongue geographic [Not Recovered/Not Resolved]
  - Light chain analysis decreased [Unknown]
  - Mouth ulceration [Unknown]
  - Peripheral swelling [Unknown]
  - Paraproteinaemia [Unknown]
  - Decreased appetite [Unknown]
  - Dizziness [Unknown]
  - Fatigue [Unknown]
  - Insomnia [Recovering/Resolving]
  - Platelet count decreased [Recovering/Resolving]
  - Increased tendency to bruise [Unknown]
  - Nausea [Recovering/Resolving]
  - Fall [Recovering/Resolving]
  - Joint dislocation [Recovering/Resolving]
  - Contusion [Recovering/Resolving]
  - Scratch [Recovering/Resolving]
  - Iron deficiency [Not Recovered/Not Resolved]
  - Blood magnesium decreased [Unknown]
  - Blood potassium decreased [Unknown]
  - Headache [Unknown]
  - Hepatic function abnormal [Unknown]
  - Diarrhoea [Recovering/Resolving]

NARRATIVE: CASE EVENT DATE: 20210609
